FAERS Safety Report 16896046 (Version 3)
Quarter: 2019Q4

REPORT INFORMATION
  Report Type: Spontaneous
  Country: DE (occurrence: DE)
  Receive Date: 20191008
  Receipt Date: 20191213
  Transmission Date: 20200122
  Serious: Yes (Hospitalization)
  Sender: FDA-Public Use
  Company Number: DE-ELI_LILLY_AND_COMPANY-DE201909014244

PATIENT
  Sex: Female
  Weight: 90 kg

DRUGS (6)
  1. PELGRAZ [Suspect]
     Active Substance: PEGFILGRASTIM
     Indication: PRODUCT USED FOR UNKNOWN INDICATION
     Dosage: UNK UNK, CYCLICAL (1ST CYCLE)
     Route: 065
     Dates: start: 20190524
  2. PELGRAZ [Suspect]
     Active Substance: PEGFILGRASTIM
     Dosage: UNK UNK, CYCLICAL (3RD CYCLE)
     Route: 065
     Dates: start: 20190614
  3. PELGRAZ [Suspect]
     Active Substance: PEGFILGRASTIM
     Dosage: 6 MG, CYCLICAL (4TH CYCLE)
     Route: 065
     Dates: start: 20190816
  4. CARBOPLATIN. [Suspect]
     Active Substance: CARBOPLATIN
     Indication: ENDOMETRIAL CANCER
     Route: 042
     Dates: start: 20190822, end: 20190822
  5. GEMCITABINE HYDROCHLORIDE. [Suspect]
     Active Substance: GEMCITABINE HYDROCHLORIDE
     Indication: ENDOMETRIAL CANCER
     Dosage: 2000 MG, DAILY
     Route: 042
     Dates: start: 20190822, end: 20190822
  6. PELGRAZ [Suspect]
     Active Substance: PEGFILGRASTIM
     Dosage: UNK UNK, CYCLICAL (3RD CYCLE)
     Route: 065
     Dates: start: 20190705

REACTIONS (4)
  - General physical health deterioration [Recovered/Resolved]
  - Pancytopenia [Recovered/Resolved]
  - Febrile neutropenia [Recovered/Resolved]
  - Sepsis [Recovered/Resolved]

NARRATIVE: CASE EVENT DATE: 20190828
